FAERS Safety Report 6705038-7 (Version None)
Quarter: 2010Q2

REPORT INFORMATION
  Report Type: 
  Country: None (occurrence: None)
  Receive Date: 20100430
  Receipt Date: 20100421
  Transmission Date: 20101027
  Serious: Yes (Other)
  Sender: FDA-Public Use
  Company Number: B0647828A

PATIENT
  Sex: Female

DRUGS (4)
  1. ARIXTRA [Suspect]
     Indication: THROMBOSIS PROPHYLAXIS
     Dosage: 1.5MG PER DAY
     Route: 058
     Dates: start: 20100313, end: 20100320
  2. LIVACT [Concomitant]
     Dosage: 12.45G PER DAY
     Route: 048
  3. URSO 250 [Concomitant]
     Indication: BILE DUCT OBSTRUCTION
     Dosage: 600MG PER DAY
     Route: 048
  4. PARIET [Concomitant]
     Dosage: 10MG PER DAY
     Route: 048

REACTIONS (2)
  - PLEURAL EFFUSION [None]
  - RESPIRATORY FAILURE [None]
